APPROVED DRUG PRODUCT: CEFAZOLIN SODIUM
Active Ingredient: CEFAZOLIN SODIUM
Strength: EQ 10GM BASE/VIAL
Dosage Form/Route: INJECTABLE;INJECTION
Application: A209217 | Product #001 | TE Code: AP
Applicant: QILU ANTIBIOTICS PHARMACEUTICAL CO LTD
Approved: Oct 17, 2018 | RLD: No | RS: Yes | Type: RX